FAERS Safety Report 6420937-1 (Version None)
Quarter: 2009Q4

REPORT INFORMATION
  Report Type: 
  Country: None (occurrence: None)
  Receive Date: 20091028
  Receipt Date: 20091016
  Transmission Date: 20100525
  Serious: Yes (Hospitalization)
  Sender: FDA-Public Use
  Company Number: GXKR2009US01957

PATIENT
  Age: 66 Year
  Sex: Female
  Weight: 68.8 kg

DRUGS (4)
  1. METFORMIN HCL [Suspect]
     Indication: DIABETES MELLITUS
     Dosage: 1000 MG, BID, ORAL 500 MG, ORAL
     Route: 048
  2. RECLAST [Suspect]
     Indication: OSTEOPOROSIS
     Dosage: UNK, INTRAVENOUS
     Route: 042
     Dates: start: 20090626, end: 20090626
  3. GLIMEPIRIDE [Concomitant]
  4. JANUVIA [Concomitant]

REACTIONS (11)
  - APHASIA [None]
  - ASTHENIA [None]
  - BLOOD GLUCOSE INCREASED [None]
  - DIARRHOEA [None]
  - HYPOVENTILATION [None]
  - MENTAL STATUS CHANGES [None]
  - OXYGEN SATURATION DECREASED [None]
  - PNEUMONIA [None]
  - PULMONARY OEDEMA [None]
  - SPEECH DISORDER [None]
  - TACHYCARDIA [None]
